FAERS Safety Report 4702522-2 (Version None)
Quarter: 2005Q2

REPORT INFORMATION
  Report Type: 
  Country: None (occurrence: None)
  Receive Date: 20050622
  Receipt Date: 20050606
  Transmission Date: 20051028
  Serious: Yes (Hospitalization)
  Sender: FDA-Public Use
  Company Number: 2005-00471

PATIENT
  Age: 68 Year
  Sex: Male

DRUGS (1)
  1. IMMUCYST [Suspect]
     Indication: BLADDER CANCER
     Dosage: (81.0 MG) , I.VES, BLADDER
     Route: 043
     Dates: start: 20041217, end: 20050121

REACTIONS (3)
  - BLADDER CONSTRICTION [None]
  - HYPERTONIC BLADDER [None]
  - POLLAKIURIA [None]
